FAERS Safety Report 6544221-0 (Version None)
Quarter: 2010Q1

REPORT INFORMATION
  Report Type: 
  Country: None (occurrence: None)
  Receive Date: 20100119
  Receipt Date: 20100119
  Transmission Date: 20100710
  Serious: Yes (Life-Threatening, Hospitalization)
  Sender: FDA-Public Use
  Company Number: None

PATIENT
  Age: 72 Year
  Sex: Male
  Weight: 77.07 kg

DRUGS (3)
  1. METOPROLOL TARTRATE [Suspect]
     Indication: ATRIAL FLUTTER
     Dosage: 12.5 MG BID PO
     Route: 048
     Dates: start: 20091015, end: 20091015
  2. DILTIAZEM HCL [Suspect]
     Indication: ATRIAL FLUTTER
     Dosage: 240 MG EVERY DAY PO
     Route: 048
     Dates: start: 20090205, end: 20091015
  3. FLECAINIDE ACETATE [Suspect]

REACTIONS (3)
  - ATRIAL FLUTTER [None]
  - BRADYCARDIA [None]
  - HYPOTENSION [None]
